FAERS Safety Report 21980161 (Version 2)
Quarter: 2023Q1

REPORT INFORMATION
  Report Type: Spontaneous
  Country: US (occurrence: US)
  Receive Date: 20230210
  Receipt Date: 20230323
  Transmission Date: 20230417
  Serious: Yes (Death, Other)
  Sender: FDA-Public Use
  Company Number: US-BEH-2023155061

PATIENT
  Age: 58 Year
  Sex: Female

DRUGS (8)
  1. HIZENTRA [Suspect]
     Active Substance: HUMAN IMMUNOGLOBULIN G
     Indication: Immunodeficiency common variable
     Dosage: 10 GRAM, QW
     Route: 058
     Dates: start: 20220207
  2. HIZENTRA [Suspect]
     Active Substance: HUMAN IMMUNOGLOBULIN G
     Dosage: UNK, QW
     Route: 065
     Dates: start: 202202
  3. HIZENTRA [Suspect]
     Active Substance: HUMAN IMMUNOGLOBULIN G
     Dosage: UNK
     Route: 065
     Dates: start: 20230206
  4. OPSUMIT [Concomitant]
     Active Substance: MACITENTAN
     Dosage: UNK
     Route: 065
     Dates: end: 202212
  5. ALBUTEROL [Concomitant]
     Active Substance: ALBUTEROL
  6. ASPIRIN [Concomitant]
     Active Substance: ASPIRIN
  7. ATORVASTATIN [Concomitant]
     Active Substance: ATORVASTATIN
  8. HEPARIN [Concomitant]
     Active Substance: HEPARIN SODIUM

REACTIONS (7)
  - Sinus congestion [Unknown]
  - Chronic obstructive pulmonary disease [Unknown]
  - Bronchiectasis [Unknown]
  - Cardiac arrest [Fatal]
  - Pulseless electrical activity [Fatal]
  - Acute respiratory failure [Unknown]
  - Infarction [Unknown]

NARRATIVE: CASE EVENT DATE: 20230303
